FAERS Safety Report 9222298 (Version 1)
Quarter: 2013Q2

REPORT INFORMATION
  Report Type: Spontaneous
  Country: IT (occurrence: IT)
  Receive Date: 20130410
  Receipt Date: 20130410
  Transmission Date: 20140414
  Serious: Yes (Other)
  Sender: FDA-Public Use
  Company Number: IT-AMGEN-ITASP2013023348

PATIENT
  Age: 58 Year
  Sex: Male

DRUGS (1)
  1. NPLATE [Suspect]
     Indication: IDIOPATHIC THROMBOCYTOPENIC PURPURA
     Dosage: 1-4/MCGL, QWK
     Route: 058
     Dates: start: 201006

REACTIONS (3)
  - Drug effect decreased [Unknown]
  - Subdural haemorrhage [Unknown]
  - Platelet count decreased [Unknown]
